FAERS Safety Report 7340778-0 (Version None)
Quarter: 2011Q1

REPORT INFORMATION
  Report Type: 
  Country: None (occurrence: None)
  Receive Date: 20110228
  Receipt Date: 20110211
  Transmission Date: 20110831
  Serious: Yes (Hospitalization)
  Sender: FDA-Public Use
  Company Number: 2011SP007189

PATIENT
  Sex: Male

DRUGS (1)
  1. INTEGRILIN [Suspect]
     Indication: STENT PLACEMENT
     Dosage: IV
     Route: 042
     Dates: start: 20110210, end: 20110210

REACTIONS (1)
  - ABDOMINAL PAIN [None]
